FAERS Safety Report 17656053 (Version 1)
Quarter: 2020Q2

REPORT INFORMATION
  Report Type: Spontaneous
  Country: US (occurrence: US)
  Receive Date: 20200409
  Receipt Date: 20200409
  Transmission Date: 20200713
  Serious: Yes (Death)
  Sender: FDA-Public Use
  Company Number: None

PATIENT
  Sex: Male

DRUGS (19)
  1. ASPIRIN. [Concomitant]
     Active Substance: ASPIRIN
  2. AMLOD/VALSAR [Concomitant]
  3. SYNTHROID [Concomitant]
     Active Substance: LEVOTHYROXINE SODIUM
  4. PRALUENT [Suspect]
     Active Substance: ALIROCUMAB
     Indication: TYPE V HYPERLIPIDAEMIA
     Dosage: FREQUENCY: Q2W5
     Route: 058
     Dates: start: 20190619
  5. DICLOFENAC [Concomitant]
     Active Substance: DICLOFENAC
  6. LEVOTHYROXIN [Concomitant]
     Active Substance: LEVOTHYROXINE
  7. AMBIEN [Concomitant]
     Active Substance: ZOLPIDEM TARTRATE
  8. VIBRAMYCIN [Concomitant]
     Active Substance: DOXYCYCLINE
  9. LIPITOR [Concomitant]
     Active Substance: ATORVASTATIN CALCIUM
  10. PROMETHAZINE [Concomitant]
     Active Substance: PROMETHAZINE HYDROCHLORIDE
  11. BRILINTA [Concomitant]
     Active Substance: TICAGRELOR
  12. NOVOLOG [Concomitant]
     Active Substance: INSULIN ASPART
  13. TOUJEO SOLO [Concomitant]
  14. ALBUTEROL. [Concomitant]
     Active Substance: ALBUTEROL
  15. NORVASC [Concomitant]
     Active Substance: AMLODIPINE BESYLATE
  16. LISNOPRIL [Concomitant]
  17. ATORVASTATIN [Concomitant]
     Active Substance: ATORVASTATIN
  18. LEVITRA [Concomitant]
     Active Substance: VARDENAFIL HYDROCHLORIDE
  19. PROTONIX [Concomitant]
     Active Substance: PANTOPRAZOLE SODIUM

REACTIONS (1)
  - Death [None]
